FAERS Safety Report 9581711 (Version 1)
Quarter: 2013Q4

REPORT INFORMATION
  Report Type: Spontaneous
  Country: DE (occurrence: DE)
  Receive Date: 20131002
  Receipt Date: 20131002
  Transmission Date: 20140711
  Serious: Yes (Other)
  Sender: FDA-Public Use
  Company Number: DE-ABBVIE-13P-062-1150791-00

PATIENT
  Age: 57 Year
  Sex: 0

DRUGS (4)
  1. VALPROIC ACID [Suspect]
     Indication: SCHIZOAFFECTIVE DISORDER
  2. LORAZEPAM [Suspect]
     Indication: SCHIZOAFFECTIVE DISORDER
     Dosage: UP TO 6 MG/ DAY
  3. LORAZEPAM [Suspect]
     Dosage: DOSE REDUCED AFTER 8 DAYS
  4. LORAZEPAM [Suspect]
     Dosage: DOSE INCREASED

REACTIONS (2)
  - Hyperammonaemic encephalopathy [Recovered/Resolved]
  - Drug withdrawal syndrome [Recovered/Resolved]
